FAERS Safety Report 4578004-8 (Version None)
Quarter: 2005Q1

REPORT INFORMATION
  Report Type: 
  Country: None (occurrence: None)
  Receive Date: 20050209
  Receipt Date: 20050131
  Transmission Date: 20050727
  Serious: Yes (Hospitalization)
  Sender: FDA-Public Use
  Company Number: 2004121680

PATIENT
  Age: 65 Year
  Sex: Male
  Weight: 74 kg

DRUGS (7)
  1. IRINOTECAN HCL [Suspect]
     Indication: COLON CANCER
     Dosage: 342 MG, UNKOWN
     Dates: start: 20041123
  2. FLUOROURACIL (FLUOROURACIL) (FLUOROURACIL) [Suspect]
     Indication: COLON CANCER
     Dosage: 760 MG, UNKOWN
     Dates: start: 20041123
  3. LEUCOVORIN CALCIUM [Suspect]
     Indication: COLON CANCER
     Dosage: UNK (380 MG), (SEE IMAGE)
     Dates: start: 20041123
  4. LEUCOVORIN CALCIUM [Suspect]
     Indication: COLON CANCER
     Dosage: UNK (380 MG), (SEE IMAGE)
     Dates: start: 20041123
  5. OPIUM TINCTURE [Concomitant]
  6. ATROPINE SULFATE [Concomitant]
  7. PHENPROCOUMON [Concomitant]

REACTIONS (6)
  - COAGULOPATHY [None]
  - DIARRHOEA [None]
  - HAEMATOMA [None]
  - INTERNATIONAL NORMALISED RATIO INCREASED [None]
  - PROTHROMBIN TIME PROLONGED [None]
  - RENAL FAILURE [None]
